FAERS Safety Report 13897073 (Version 2)
Quarter: 2017Q3

REPORT INFORMATION
  Report Type: Spontaneous
  Country: US (occurrence: US)
  Receive Date: 20170823
  Receipt Date: 20170908
  Transmission Date: 20171127
  Serious: Yes (Hospitalization, Other)
  Sender: FDA-Public Use
  Company Number: US-WEST-WARD PHARMACEUTICALS CORP.-US-H14001-17-03053

PATIENT
  Age: 32 Year
  Sex: Male

DRUGS (4)
  1. NANDROLONE [Interacting]
     Active Substance: NANDROLONE
     Indication: PRODUCT USE IN UNAPPROVED INDICATION
     Route: 030
  2. PHENIBUT [Interacting]
     Active Substance: DIETARY SUPPLEMENT
     Indication: PRODUCT USED FOR UNKNOWN INDICATION
     Dosage: 8 TO 10 G/D
     Route: 065
  3. PHENIBUT [Interacting]
     Active Substance: DIETARY SUPPLEMENT
     Dosage: 8 TO 10 G/D
     Route: 065
  4. TESTOSTERONE. [Suspect]
     Active Substance: TESTOSTERONE
     Indication: PRODUCT USE IN UNAPPROVED INDICATION
     Route: 030

REACTIONS (2)
  - Drug interaction [Unknown]
  - Intentional product misuse [Unknown]
